FAERS Safety Report 10157955 (Version 2)
Quarter: 2014Q3

REPORT INFORMATION
  Report Type: Spontaneous
  Country: US (occurrence: US)
  Receive Date: 20140507
  Receipt Date: 20140815
  Transmission Date: 20150326
  Serious: Yes (Death, Hospitalization)
  Sender: FDA-Public Use
  Company Number: US-GLAXOSMITHKLINE-A1071384A

PATIENT
  Age: 65 Year
  Sex: Male

DRUGS (5)
  1. DIGOXIN. [Concomitant]
     Active Substance: DIGOXIN
  2. METOPROLOL XL [Concomitant]
     Active Substance: METOPROLOL
  3. ARIXTRA [Suspect]
     Active Substance: FONDAPARINUX SODIUM
     Indication: DEEP VEIN THROMBOSIS
     Dosage: 10MG PER DAY
     Route: 058
     Dates: start: 201211
  4. LORATADINE. [Concomitant]
     Active Substance: LORATADINE
  5. TEN-010 (CLINICAL TRIAL DRUG) [Concomitant]

REACTIONS (2)
  - Intestinal obstruction [Unknown]
  - Death [Fatal]

NARRATIVE: CASE EVENT DATE: 20140423
